FAERS Safety Report 5392197-4 (Version None)
Quarter: 2007Q3

REPORT INFORMATION
  Report Type: 
  Country: None (occurrence: None)
  Receive Date: 20070717
  Receipt Date: 20070717
  Transmission Date: 20080115
  Serious: Yes (Hospitalization)
  Sender: FDA-Public Use
  Company Number: None

PATIENT
  Age: 15 Year
  Sex: Male
  Weight: 30 kg

DRUGS (1)
  1. LINEZOLID [Suspect]
     Indication: EVIDENCE BASED TREATMENT
     Dates: start: 20070515, end: 20070712

REACTIONS (1)
  - LACTIC ACIDOSIS [None]
